FAERS Safety Report 14419316 (Version 1)
Quarter: 2018Q1

REPORT INFORMATION
  Report Type: Spontaneous
  Country: US (occurrence: US)
  Receive Date: 20180120
  Receipt Date: 20180120
  Transmission Date: 20180509
  Serious: Yes (Disabling)
  Sender: FDA-Public Use
  Company Number: None

PATIENT
  Age: 59 Year
  Sex: Female
  Weight: 68.85 kg

DRUGS (7)
  1. CALCIUM [Concomitant]
     Active Substance: CALCIUM
  2. VERAPIMAL [Concomitant]
  3. VITAMIN C [Concomitant]
     Active Substance: ASCORBIC ACID
  4. LEXAPRO GENERIC [Suspect]
     Active Substance: ESCITALOPRAM OXALATE
     Indication: DEPRESSION
     Dates: start: 20170801, end: 20170831
  5. LEXAPRO GENERIC [Suspect]
     Active Substance: ESCITALOPRAM OXALATE
     Indication: ANXIETY
     Dates: start: 20170801, end: 20170831
  6. WELLBUTRIN GENERIC [Concomitant]
     Active Substance: BUPROPION HYDROCHLORIDE
  7. LOPRESSOR [Concomitant]
     Active Substance: METOPROLOL TARTRATE

REACTIONS (4)
  - Product substitution issue [None]
  - Anxiety [None]
  - Economic problem [None]
  - Depression [None]

NARRATIVE: CASE EVENT DATE: 20180101
